FAERS Safety Report 20960256 (Version 5)
Quarter: 2022Q3

REPORT INFORMATION
  Report Type: Report from Study
  Country: FI (occurrence: FI)
  Receive Date: 20220615
  Receipt Date: 20220815
  Transmission Date: 20221027
  Serious: Yes (Hospitalization, Disabling, Other)
  Sender: FDA-Public Use
  Company Number: FI-ABBVIE-22K-055-4428528-00

PATIENT
  Sex: Male

DRUGS (23)
  1. CARBIDOPA\LEVODOPA [Suspect]
     Active Substance: CARBIDOPA\LEVODOPA
     Indication: Parkinson^s disease
     Dosage: MD 8ML, CD 4 ML/H, ED 1.5ML, 24H TREATMENT
     Route: 050
     Dates: start: 2016, end: 202206
  2. CARBIDOPA\LEVODOPA [Suspect]
     Active Substance: CARBIDOPA\LEVODOPA
     Dosage: MD 3.8ML, CD 2.1ML/H, ED 1.5ML, 24H TREATMENT
     Route: 050
     Dates: start: 202206, end: 202206
  3. CARBIDOPA\LEVODOPA [Suspect]
     Active Substance: CARBIDOPA\LEVODOPA
     Dosage: MD 11ML, CD DAY 4.8 ML/H, CD NIGHT 3.9-4 ML/H, ED 1,5ML
     Route: 050
     Dates: start: 202206, end: 20220617
  4. CARBIDOPA\LEVODOPA [Suspect]
     Active Substance: CARBIDOPA\LEVODOPA
     Dosage: MD 5 ML, CD DAY 4.1ML/H, CD NIGHT 2.1 ML, NO ED
     Route: 050
     Dates: start: 20220617, end: 202206
  5. CARBIDOPA\LEVODOPA [Suspect]
     Active Substance: CARBIDOPA\LEVODOPA
     Dosage: MD 5 ML, CD DAY 4 ML/H, CD NIGHT 2.7 ML/H, NO ED
     Route: 050
     Dates: start: 202206
  6. GAVISCON [Concomitant]
     Active Substance: ALUMINUM HYDROXIDE\MAGNESIUM CARBONATE
     Indication: Product used for unknown indication
     Dosage: IF NEEDED
  7. TRIOBE [Concomitant]
     Indication: Product used for unknown indication
     Dosage: IN THE MORNINGS
  8. IBUPROFEN [Concomitant]
     Active Substance: IBUPROFEN
     Indication: Product used for unknown indication
     Dosage: IF NEEDED
  9. QUETIAPINE [Concomitant]
     Active Substance: QUETIAPINE
     Indication: Product used for unknown indication
     Dosage: FOR THE NIGHT
  10. QUETIAPINE [Concomitant]
     Active Substance: QUETIAPINE
     Dosage: IN THE MORNINGS AND IF NEEDED
  11. OFTAN AKVAKOL [Concomitant]
     Indication: Product used for unknown indication
     Dosage: INTO THE RIGHT EYE
  12. CHOLECALCIFEROL [Concomitant]
     Active Substance: CHOLECALCIFEROL
     Indication: Product used for unknown indication
     Dosage: IN THE MORNING
  13. LACTULOSE [Concomitant]
     Active Substance: LACTULOSE
     Indication: Product used for unknown indication
     Dosage: IN THE MORNING
  14. MAGNESIUM HYDROXIDE [Concomitant]
     Active Substance: MAGNESIUM HYDROXIDE
     Indication: Product used for unknown indication
     Dosage: IN THE MORNING
  15. POLYETHYLENE GLYCOL 4000 [Concomitant]
     Active Substance: POLYETHYLENE GLYCOL 4000
     Indication: Product used for unknown indication
     Dosage: IF NEEDED
  16. MELATONIN [Concomitant]
     Active Substance: MELATONIN
     Indication: Product used for unknown indication
     Dosage: IN THE EVENING
  17. NAPROXEN [Concomitant]
     Active Substance: NAPROXEN
     Indication: Product used for unknown indication
     Dosage: IF NEEDED
  18. DOCUSATE SODIUM [Concomitant]
     Active Substance: DOCUSATE SODIUM
     Indication: Product used for unknown indication
     Dosage: IF NEEDED
  19. PICORION [Concomitant]
     Indication: Product used for unknown indication
     Dosage: SOLUTION
  20. OXAZEPAM [Concomitant]
     Active Substance: OXAZEPAM
     Indication: Product used for unknown indication
     Dosage: 1 TO 3 TIMES PER DAY
  21. PANTOPRAZOLE [Concomitant]
     Active Substance: PANTOPRAZOLE
     Indication: Product used for unknown indication
     Dosage: IN THE MORNING
  22. ACETAMINOPHEN [Concomitant]
     Active Substance: ACETAMINOPHEN
     Indication: Product used for unknown indication
  23. BRINTELLIX [Concomitant]
     Active Substance: VORTIOXETINE HYDROBROMIDE
     Indication: Product used for unknown indication
     Dosage: IN THE MORNING

REACTIONS (25)
  - Loss of personal independence in daily activities [Recovering/Resolving]
  - Mental disorder [Not Recovered/Not Resolved]
  - Negative thoughts [Not Recovered/Not Resolved]
  - Affective disorder [Recovering/Resolving]
  - Abnormal behaviour [Recovering/Resolving]
  - Self-injurious ideation [Not Recovered/Not Resolved]
  - Loss of consciousness [Unknown]
  - Gait disturbance [Unknown]
  - Panic attack [Unknown]
  - Hernia [Unknown]
  - Speech disorder [Unknown]
  - Musculoskeletal stiffness [Unknown]
  - Psychological trauma [Unknown]
  - Movement disorder [Unknown]
  - Aggression [Unknown]
  - Aggression [Not Recovered/Not Resolved]
  - Paranoia [Unknown]
  - Fear [Unknown]
  - Malaise [Unknown]
  - Unevaluable event [Not Recovered/Not Resolved]
  - Depression [Not Recovered/Not Resolved]
  - Insomnia [Unknown]
  - Overdose [Unknown]
  - Unevaluable event [Unknown]
  - Device occlusion [Unknown]

NARRATIVE: CASE EVENT DATE: 20220101
